FAERS Safety Report 4501091-X (Version None)
Quarter: 2004Q4

REPORT INFORMATION
  Report Type: 
  Country: None (occurrence: None)
  Receive Date: 20041110
  Receipt Date: 20041029
  Transmission Date: 20050328
  Serious: Yes (Hospitalization)
  Sender: FDA-Public Use
  Company Number: 2004242238US

PATIENT
  Age: 73 Year
  Sex: Female
  Weight: 73.5 kg

DRUGS (4)
  1. BEXTRA [Suspect]
     Indication: OSTEOARTHRITIS
     Dosage: 10 MG, QD, ORAL
     Route: 048
     Dates: start: 20041004, end: 20041026
  2. LASIX [Concomitant]
  3. CALCIUM [Concomitant]
  4. LOTREL [Concomitant]

REACTIONS (14)
  - BRAIN DAMAGE [None]
  - CIRCULATORY COLLAPSE [None]
  - COGNITIVE DISORDER [None]
  - CONFUSIONAL STATE [None]
  - DECREASED APPETITE [None]
  - DEMENTIA [None]
  - FATIGUE [None]
  - INFLUENZA LIKE ILLNESS [None]
  - MEMORY IMPAIRMENT [None]
  - NAUSEA [None]
  - RASH [None]
  - RENAL SCAN ABNORMAL [None]
  - SLUGGISHNESS [None]
  - TREMOR [None]
